FAERS Safety Report 18774580 (Version 1)
Quarter: 2021Q1

REPORT INFORMATION
  Report Type: Spontaneous
  Country: US (occurrence: US)
  Receive Date: 20210122
  Receipt Date: 20210122
  Transmission Date: 20210419
  Serious: Yes (Death, Life-Threatening, Hospitalization, Other)
  Sender: FDA-Public Use
  Company Number: US-HIKMA PHARMACEUTICALS USA INC.-US-H14001-21-53440

PATIENT
  Age: 37 Year
  Sex: Male

DRUGS (1)
  1. AMLODIPINE [Suspect]
     Active Substance: AMLODIPINE BESYLATE
     Indication: HYPERTENSION
     Dosage: UNKNOWN
     Route: 048

REACTIONS (11)
  - Acute respiratory distress syndrome [Fatal]
  - Intentional overdose [Fatal]
  - Neutrophilia [Unknown]
  - Leukocytosis [Fatal]
  - Coma [Unknown]
  - Leukaemoid reaction [Fatal]
  - Myelocyte count increased [Unknown]
  - Toxicity to various agents [Fatal]
  - Distributive shock [Unknown]
  - Metamyelocyte count increased [Unknown]
  - Cardio-respiratory arrest [Fatal]
